FAERS Safety Report 7644230-4 (Version None)
Quarter: 2011Q3

REPORT INFORMATION
  Report Type: 
  Country: None (occurrence: None)
  Receive Date: 20110729
  Receipt Date: 20110719
  Transmission Date: 20111222
  Serious: Yes (Other)
  Sender: FDA-Public Use
  Company Number: BR-ASTELLAS-2011US004293

PATIENT
  Sex: Male
  Weight: 93 kg

DRUGS (6)
  1. ERLOTINIB HYDROCHLORIDE [Suspect]
     Dosage: 150 MG, UID/QD
     Route: 048
     Dates: start: 20100720, end: 20101006
  2. SORAFENIB [Suspect]
     Dosage: 400 MG, BID
     Route: 048
     Dates: start: 20100811, end: 20101006
  3. ERLOTINIB HYDROCHLORIDE [Suspect]
     Indication: HEPATIC NEOPLASM MALIGNANT
     Dosage: 300 MG, UID/QD
     Route: 048
     Dates: start: 20100406, end: 20100428
  4. SORAFENIB [Suspect]
     Dosage: 400 MG, UID/QD
     Dates: start: 20100720, end: 20100810
  5. SORAFENIB [Suspect]
     Indication: HEPATIC NEOPLASM MALIGNANT
     Dosage: 400 MG, BID
     Route: 048
     Dates: start: 20100406, end: 20100714
  6. ERLOTINIB HYDROCHLORIDE [Suspect]
     Dosage: 150 MG, UID/QD
     Route: 048
     Dates: start: 20100430, end: 20100714

REACTIONS (7)
  - DIARRHOEA [None]
  - SLEEP DISORDER [None]
  - OVERDOSE [None]
  - ABDOMINAL PAIN [None]
  - FATIGUE [None]
  - BLOOD PRESSURE INCREASED [None]
  - TONGUE HAEMORRHAGE [None]
